FAERS Safety Report 7310131-4 (Version None)
Quarter: 2011Q1

REPORT INFORMATION
  Report Type: 
  Country: None (occurrence: None)
  Receive Date: 20110224
  Receipt Date: 20110215
  Transmission Date: 20110831
  Serious: No
  Sender: FDA-Public Use
  Company Number: US-PFIZER INC-2010151504

PATIENT
  Sex: Male

DRUGS (4)
  1. CONCERTA [Concomitant]
     Dosage: 200 MG, 1X/DAY
  2. ZYRTEC [Concomitant]
     Dosage: 10 MG, 1X/DAY
  3. GENOTROPIN [Suspect]
     Indication: GROWTH HORMONE DEFICIENCY
     Dosage: 3 MG, 1X/DAY
     Route: 058
  4. ZOLOFT [Concomitant]
     Dosage: 72 MG, 1X/DAY

REACTIONS (1)
  - MALOCCLUSION [None]
